FAERS Safety Report 8470986-7 (Version None)
Quarter: 2012Q2

REPORT INFORMATION
  Report Type: 
  Country: None (occurrence: None)
  Receive Date: 20120323
  Receipt Date: 20110824
  Transmission Date: 20120825
  Serious: Yes (Hospitalization)
  Sender: FDA-Public Use
  Company Number: 163-21880-11082907

PATIENT
  Age: 62 Year
  Sex: Male

DRUGS (3)
  1. DECADRON [Concomitant]
  2. VICODIN [Concomitant]
  3. REVLIMID [Suspect]
     Indication: MULTIPLE MYELOMA
     Dosage: 25 MG, 1 IN 1 D, PO
     Route: 048
     Dates: start: 20110510, end: 20110816

REACTIONS (1)
  - DEEP VEIN THROMBOSIS [None]
